FAERS Safety Report 7605178-4 (Version None)
Quarter: 2011Q3

REPORT INFORMATION
  Report Type: 
  Country: None (occurrence: None)
  Receive Date: 20110702
  Receipt Date: 20110620
  Transmission Date: 20111222
  Serious: Yes (Life-Threatening, Hospitalization)
  Sender: FDA-Public Use
  Company Number: 963459

PATIENT
  Age: 42 Year
  Sex: Male

DRUGS (2)
  1. STELARA [Suspect]
     Indication: PSORIASIS
     Dosage: 45 MG, SUBCUTANEOUS
     Route: 058
     Dates: start: 20101118, end: 20110420
  2. METHOTREXATE [Suspect]
     Indication: PSORIASIS
     Dosage: 7.5 MG
     Dates: start: 20110331, end: 20110420

REACTIONS (2)
  - RENAL FAILURE ACUTE [None]
  - PNEUMONIA PNEUMOCOCCAL [None]
